FAERS Safety Report 25508990 (Version 2)
Quarter: 2025Q4

REPORT INFORMATION
  Report Type: Spontaneous
  Country: CN (occurrence: CN)
  Receive Date: 20250703
  Receipt Date: 20251125
  Transmission Date: 20260117
  Serious: Yes (Other)
  Sender: MERCK SHARP & DOHME LLC
  Company Number: CN-SICHUAN KELUNBIOTECH BIOPHARMACEUTICAL CO. LTD.-2025KB000128

PATIENT
  Age: 67 Year
  Sex: Male

DRUGS (1)
  1. SACITUZUMAB TIRUMOTECAN [Suspect]
     Active Substance: SACITUZUMAB TIRUMOTECAN
     Indication: Lung adenocarcinoma
     Route: 042
     Dates: start: 20250506, end: 20250506

REACTIONS (2)
  - Myelosuppression [Recovering/Resolving]
  - Off label use [Unknown]

NARRATIVE: CASE EVENT DATE: 20250506
